FAERS Safety Report 4890808-0 (Version None)
Quarter: 2006Q1

REPORT INFORMATION
  Report Type: 
  Country: None (occurrence: None)
  Receive Date: 20060123
  Receipt Date: 20060113
  Transmission Date: 20060701
  Serious: Yes (Hospitalization, Other)
  Sender: FDA-Public Use
  Company Number: 200610281BWH

PATIENT
  Age: 47 Year
  Sex: Female
  Weight: 60 kg

DRUGS (5)
  1. SORAFENIB [Suspect]
     Indication: METASTATIC RENAL CELL CARCINOMA
     Dosage: 200 MG, BID, ORAL
     Route: 048
     Dates: start: 20051208, end: 20051230
  2. COLACE [Concomitant]
  3. HYDROMORPHONE HYDROCHLORIDE [Concomitant]
  4. METHADONE [Concomitant]
  5. FENTANYL [Concomitant]

REACTIONS (5)
  - DEHYDRATION [None]
  - ENTERITIS [None]
  - HYPERTENSION [None]
  - ODYNOPHAGIA [None]
  - PLATELET DISORDER [None]
